FAERS Safety Report 5734999-8 (Version None)
Quarter: 2008Q2

REPORT INFORMATION
  Report Type: 
  Country: None (occurrence: None)
  Receive Date: 20080512
  Receipt Date: 20080507
  Transmission Date: 20081010
  Serious: Yes (Death, Life-Threatening)
  Sender: FDA-Public Use
  Company Number: ES-BAYER-200817888GPV

PATIENT
  Age: 76 Year
  Sex: Male

DRUGS (7)
  1. APROTININ [Suspect]
     Indication: AORTIC VALVE REPLACEMENT
     Route: 065
  2. REMIFENTANIL [Concomitant]
     Indication: ANAESTHESIA
     Route: 065
  3. FENTANYL [Concomitant]
     Indication: ANAESTHESIA
     Route: 065
  4. ETOMIDATE [Concomitant]
     Indication: ANAESTHESIA
     Route: 065
  5. MIDAZOLAM HCL [Concomitant]
     Indication: ANAESTHESIA
     Route: 065
  6. ATRACURIUM BESYLATE [Concomitant]
     Indication: ANAESTHESIA
     Route: 065
  7. CEFAZOLIN [Concomitant]
     Indication: PREMEDICATION
     Route: 065

REACTIONS (5)
  - ANAPHYLACTIC REACTION [None]
  - CARDIO-RESPIRATORY ARREST [None]
  - HYPOTENSION [None]
  - PULMONARY HYPERTENSION [None]
  - VENTRICULAR FIBRILLATION [None]
